FAERS Safety Report 11864553 (Version 1)
Quarter: 2015Q4

REPORT INFORMATION
  Report Type: Spontaneous
  Country: US (occurrence: US)
  Receive Date: 20151223
  Receipt Date: 20151223
  Transmission Date: 20160305
  Serious: No
  Sender: FDA-Public Use
  Company Number: US-RISING PHARMACEUTICALS, INC.-2015RIS00042

PATIENT
  Age: 2 Year
  Sex: Male
  Weight: 13.15 kg

DRUGS (3)
  1. CROMOLYN SODIUM ORAL SOLUTION [Suspect]
     Active Substance: CROMOLYN SODIUM
     Indication: FOOD ALLERGY
     Dosage: 5 ML, 3X/DAY
     Route: 048
     Dates: start: 201501, end: 20150319
  2. VITAMIN D [Concomitant]
     Active Substance: CHOLECALCIFEROL
     Dosage: UNK, 1X/DAY
     Dates: start: 2014
  3. UNSPECIFIED PROBIOTIC [Concomitant]
     Dosage: UNK, 1X/DAY
     Dates: start: 2014

REACTIONS (6)
  - Malaise [Recovering/Resolving]
  - Regurgitation [Not Recovered/Not Resolved]
  - Diarrhoea [Not Recovered/Not Resolved]
  - Urticaria [Recovering/Resolving]
  - Rash [Not Recovered/Not Resolved]
  - Crying [Recovering/Resolving]

NARRATIVE: CASE EVENT DATE: 20150317
